FAERS Safety Report 11078457 (Version 2)
Quarter: 2015Q2

REPORT INFORMATION
  Report Type: Spontaneous
  Country: IE (occurrence: None)
  Receive Date: 20150428
  Receipt Date: 20150507
  Transmission Date: 20150821
  Serious: Yes (Hospitalization)
  Sender: FDA-Public Use
  Company Number: FK201501915

PATIENT
  Age: 42 Year
  Sex: Male

DRUGS (5)
  1. GRANULOCYTE COLONY-STIMULATING FACTOR NOS [Concomitant]
     Active Substance: GRANULOCYTE COLONY-STIMULATING FACTOR NOS
  2. ETOPOSIDE (MANUFACTURER UNKNOWN) (ETOPOSIDE) (ETOPOSIDE) [Suspect]
     Active Substance: ETOPOSIDE
     Indication: TESTIS CANCER
     Dosage: 80 MG/M2, ON DAYS 1-5, 3 CYCLES OVER 12 WEEKS
  3. ETOPOSIDE (MANUFACTURER UNKNOWN) (ETOPOSIDE) (ETOPOSIDE) [Suspect]
     Active Substance: ETOPOSIDE
     Indication: METASTATIC CARCINOID TUMOUR
     Dosage: 80 MG/M2, ON DAYS 1-5, 3 CYCLES OVER 12 WEEKS
  4. CISPLATIN (MANUFACTURER UNKNOWN) (CISPLATIN) (CISPLATIN) [Suspect]
     Active Substance: CISPLATIN
     Indication: TESTIS CANCER
     Dosage: 20 MG/M2, ON DAYS 1-5, 3 CYCLES OVER 12 WEEKS
  5. CISPLATIN (MANUFACTURER UNKNOWN) (CISPLATIN) (CISPLATIN) [Suspect]
     Active Substance: CISPLATIN
     Indication: METASTATIC CARCINOID TUMOUR
     Dosage: 20 MG/M2, ON DAYS 1-5, 3 CYCLES OVER 12 WEEKS

REACTIONS (7)
  - Acute kidney injury [None]
  - Ulcer [None]
  - Neutropenic sepsis [None]
  - Pancytopenia [None]
  - Bone marrow failure [None]
  - Toxicity to various agents [None]
  - Enterococcal infection [None]
